FAERS Safety Report 7704836-0 (Version None)
Quarter: 2011Q3

REPORT INFORMATION
  Report Type: 
  Country: None (occurrence: None)
  Receive Date: 20110823
  Receipt Date: 20110819
  Transmission Date: 20111222
  Serious: Yes (Hospitalization)
  Sender: FDA-Public Use
  Company Number: PHHO2011DE14102

PATIENT
  Sex: Female
  Weight: 55.5 kg

DRUGS (1)
  1. FTY [Suspect]
     Dosage: 0.5 MG, UNK
     Route: 048
     Dates: start: 20110415, end: 20110817

REACTIONS (3)
  - ORAL CANDIDIASIS [None]
  - OESOPHAGEAL CANDIDIASIS [None]
  - MULTIPLE SCLEROSIS RELAPSE [None]
